FAERS Safety Report 10160624 (Version 1)
Quarter: 2014Q2

REPORT INFORMATION
  Report Type: Spontaneous
  Country: ES (occurrence: ES)
  Receive Date: 20140508
  Receipt Date: 20140508
  Transmission Date: 20141212
  Serious: Yes (Other)
  Sender: FDA-Public Use
  Company Number: ES-ACTAVIS-2014-09184

PATIENT
  Age: 72 Year
  Sex: Male

DRUGS (5)
  1. PHENYTOIN (AMALLC) [Suspect]
     Indication: STATUS EPILEPTICUS
     Dosage: 1600 MG, SINGLE
     Route: 065
  2. PHENYTOIN (AMALLC) [Suspect]
     Dosage: 150 MG, Q8H
     Route: 065
  3. PHENYTOIN (AMALLC) [Suspect]
     Dosage: 100 MG, Q8H
     Route: 065
  4. PROPOFOL [Concomitant]
     Indication: STATUS EPILEPTICUS
     Dosage: 200 MG/H, UNK
     Route: 065
  5. MORPHINE [Concomitant]
     Indication: STATUS EPILEPTICUS
     Dosage: 40 MG, DAILY
     Route: 065

REACTIONS (1)
  - Ophthalmoplegia [Recovered/Resolved]
